FAERS Safety Report 8529770-8 (Version None)
Quarter: 2012Q3

REPORT INFORMATION
  Report Type: 
  Country: None (occurrence: None)
  Receive Date: 20120723
  Receipt Date: 20120713
  Transmission Date: 20120928
  Serious: Yes (Hospitalization)
  Sender: FDA-Public Use
  Company Number: FR-JNJFOC-20120707505

PATIENT
  Sex: Female

DRUGS (1)
  1. RISPERDAL [Suspect]
     Indication: IMPULSIVE BEHAVIOUR
     Route: 048
     Dates: start: 20120426, end: 20120510

REACTIONS (2)
  - TONGUE OEDEMA [None]
  - POISONING DELIBERATE [None]
